FAERS Safety Report 18234407 (Version 1)
Quarter: 2020Q3

REPORT INFORMATION
  Report Type: Report from Study
  Country: US (occurrence: US)
  Receive Date: 20200904
  Receipt Date: 20200904
  Transmission Date: 20201103
  Serious: No
  Sender: FDA-Public Use
  Company Number: US-IPSEN BIOPHARMACEUTICALS, INC.-2020-10651

PATIENT
  Age: 16 Year
  Sex: Female
  Weight: 36.6 kg

DRUGS (17)
  1. TRILEPTAL [Concomitant]
     Active Substance: OXCARBAZEPINE
     Route: 048
  2. PHENOL/ALCOHOL INJECTIONS [Concomitant]
     Indication: MUSCLE SPASTICITY
     Route: 030
     Dates: start: 20170125, end: 20170125
  3. DIAZEPAM. [Concomitant]
     Active Substance: DIAZEPAM
     Indication: SEIZURE
     Dosage: AS NEEDED
     Route: 048
     Dates: start: 20140407
  4. PHENOL/ALCOHOL INJECTIONS [Concomitant]
     Route: 030
     Dates: start: 20180109, end: 20180109
  5. BACLOFEN. [Concomitant]
     Active Substance: BACLOFEN
     Route: 050
     Dates: start: 20141216, end: 20150113
  6. DYSPORT [Suspect]
     Active Substance: ABOBOTULINUMTOXINA
     Indication: MUSCLE SPASTICITY
     Dosage: 1000 IU
     Route: 030
     Dates: start: 20180109, end: 20180109
  7. ACETAMINOPHEN. [Concomitant]
     Active Substance: ACETAMINOPHEN
     Indication: PAIN
     Dates: start: 20200318, end: 20200415
  8. BACLOFEN. [Concomitant]
     Active Substance: BACLOFEN
     Indication: MUSCLE SPASTICITY
     Route: 048
     Dates: start: 20131125
  9. BACLOFEN. [Concomitant]
     Active Substance: BACLOFEN
     Route: 050
     Dates: start: 20160301, end: 20160816
  10. BACLOFEN. [Concomitant]
     Active Substance: BACLOFEN
     Route: 050
     Dates: start: 20150915, end: 20160301
  11. ACETAMINOPHEN. [Concomitant]
     Active Substance: ACETAMINOPHEN
     Indication: SURGERY
  12. BACLOFEN. [Concomitant]
     Active Substance: BACLOFEN
     Route: 050
     Dates: start: 20140116, end: 20140805
  13. BACLOFEN. [Concomitant]
     Active Substance: BACLOFEN
     Route: 050
     Dates: start: 20140805, end: 20141216
  14. BACLOFEN. [Concomitant]
     Active Substance: BACLOFEN
     Route: 050
     Dates: start: 20160816
  15. TRILEPTAL [Concomitant]
     Active Substance: OXCARBAZEPINE
     Indication: SEIZURE
     Route: 048
     Dates: start: 20150601
  16. BACLOFEN. [Concomitant]
     Active Substance: BACLOFEN
     Route: 050
     Dates: start: 20131125, end: 20140116
  17. BACLOFEN. [Concomitant]
     Active Substance: BACLOFEN
     Route: 050
     Dates: start: 20150113, end: 20150915

REACTIONS (1)
  - Medical device change [Recovered/Resolved]

NARRATIVE: CASE EVENT DATE: 20200318
